FAERS Safety Report 6933020-3 (Version None)
Quarter: 2010Q3

REPORT INFORMATION
  Report Type: 
  Country: None (occurrence: None)
  Receive Date: 20100818
  Receipt Date: 20100818
  Transmission Date: 20110219
  Serious: Yes (Hospitalization)
  Sender: FDA-Public Use
  Company Number: None

PATIENT
  Age: 89 Year
  Sex: Male

DRUGS (1)
  1. AMITRIPTYLINE HCL [Suspect]
     Dosage: 50 MG HS PO
     Route: 048
     Dates: start: 20100809, end: 20100816

REACTIONS (3)
  - AGITATION [None]
  - HALLUCINATION [None]
  - MENTAL STATUS CHANGES [None]
